FAERS Safety Report 5190452-4 (Version None)
Quarter: 2006Q4

REPORT INFORMATION
  Report Type: 
  Country: None (occurrence: None)
  Receive Date: 20061222
  Receipt Date: 20060717
  Transmission Date: 20070319
  Serious: Yes (Hospitalization, Other)
  Sender: FDA-Public Use
  Company Number: US-ELI_LILLY_AND_COMPANY-US200607002977

PATIENT
  Age: 64 Year
  Sex: Female
  Weight: 81.179 kg

DRUGS (11)
  1. ZYPREXA [Suspect]
     Dosage: 50 MG, DAILY (1/D)
     Dates: start: 19980101
  2. ZYPREXA [Suspect]
     Dosage: 20 MG, DAILY (1/D)
     Dates: start: 20050101
  3. CLOZARIL [Concomitant]
     Dosage: UNK, UNKNOWN
     Dates: start: 19990101
  4. SEROQUEL [Concomitant]
     Dosage: UNK, UNKNOWN
  5. RISPERIDONE [Concomitant]
     Dosage: UNK, UNKNOWN
  6. GEODON [Concomitant]
     Dosage: UNK, UNKNOWN
     Dates: start: 20050101
  7. THORAZINE [Concomitant]
     Dosage: UNK, UNKNOWN
     Dates: start: 20000101
  8. HALDOL [Concomitant]
     Dosage: UNK, UNKNOWN
     Dates: start: 19890101
  9. NEURONTIN [Concomitant]
     Dosage: UNK, UNKNOWN
     Dates: start: 20060101
  10. PROTONIX [Concomitant]
     Dosage: UNK, UNKNOWN
     Dates: start: 20050103
  11. PREVACID [Concomitant]
     Dosage: UNK, UNKNOWN
     Dates: start: 20060224

REACTIONS (12)
  - ABNORMAL BEHAVIOUR [None]
  - BLOOD GLUCOSE INCREASED [None]
  - DEPRESSED LEVEL OF CONSCIOUSNESS [None]
  - DIABETES MELLITUS [None]
  - DIABETIC COMA [None]
  - GALLBLADDER OPERATION [None]
  - GASTROOESOPHAGEAL REFLUX DISEASE [None]
  - INSOMNIA [None]
  - PRESCRIBED OVERDOSE [None]
  - SPEECH DISORDER [None]
  - THINKING ABNORMAL [None]
  - TREMOR [None]
